FAERS Safety Report 8983578 (Version 5)
Quarter: 2013Q3

REPORT INFORMATION
  Report Type: Report from Study
  Country: US (occurrence: US)
  Receive Date: 20121224
  Receipt Date: 20130828
  Transmission Date: 20140515
  Serious: Yes (Death, Hospitalization)
  Sender: FDA-Public Use
  Company Number: US-009507513-1212USA007963

PATIENT
  Age: 75 Year
  Sex: Male
  Weight: 73.93 kg

DRUGS (8)
  1. VORINOSTAT [Suspect]
     Indication: MYELODYSPLASTIC SYNDROME
     Dosage: 300 MG, BID DAYS 3-9
     Route: 048
     Dates: start: 20100901, end: 20100907
  2. VORINOSTAT [Suspect]
     Dosage: 300 MG, BID
     Route: 048
     Dates: start: 20121114, end: 20121120
  3. VORINOSTAT [Suspect]
     Dosage: 300 MG, BID
     Route: 048
     Dates: start: 20130112, end: 20130118
  4. VORINOSTAT [Suspect]
     Dosage: 300 MG, BID
     Route: 048
     Dates: start: 20130517, end: 20130525
  5. AZACITIDINE [Suspect]
     Indication: MYELODYSPLASTIC SYNDROME
     Dosage: 75 MG/M2, QD
     Route: 058
     Dates: start: 20100830, end: 20100905
  6. AZACITIDINE [Suspect]
     Dosage: 75 MG/M2, QD
     Route: 058
     Dates: start: 20121112, end: 20121118
  7. AZACITIDINE [Suspect]
     Dosage: 75 MG/M2, QD
     Route: 058
     Dates: start: 20130110, end: 20130116
  8. AZACITIDINE [Suspect]
     Dosage: 75 MG/M2, QD
     Route: 058
     Dates: start: 20130517, end: 20130523

REACTIONS (7)
  - Aspiration [Fatal]
  - Febrile neutropenia [Recovered/Resolved with Sequelae]
  - Embolism [Recovered/Resolved with Sequelae]
  - Lung infection [Recovered/Resolved with Sequelae]
  - Febrile neutropenia [Recovered/Resolved with Sequelae]
  - Diverticulitis [Recovered/Resolved with Sequelae]
  - Enterocolitis infectious [Unknown]
